FAERS Safety Report 15166033 (Version 1)
Quarter: 2018Q3

REPORT INFORMATION
  Report Type: Spontaneous
  Country: US (occurrence: US)
  Receive Date: 20180621
  Receipt Date: 20180621
  Transmission Date: 20181010
  Serious: Yes (Other)
  Sender: FDA-Public Use
  Company Number: None

PATIENT
  Age: 59 Year
  Sex: Male
  Weight: 74.25 kg

DRUGS (1)
  1. DULOXETINE DELAYED RELEASE 60MG [Suspect]
     Active Substance: DULOXETINE
     Indication: DEPRESSION
     Dosage: ?          QUANTITY:2 CAPSULE(S);?
     Route: 048

REACTIONS (6)
  - Balance disorder [None]
  - Dysarthria [None]
  - Therapy change [None]
  - Delusion [None]
  - Amnesia [None]
  - Disorientation [None]

NARRATIVE: CASE EVENT DATE: 20180520
